FAERS Safety Report 4709820-7 (Version None)
Quarter: 2005Q3

REPORT INFORMATION
  Report Type: 
  Country: None (occurrence: None)
  Receive Date: 20050708
  Receipt Date: 20050701
  Transmission Date: 20060218
  Serious: Yes (Other)
  Sender: FDA-Public Use
  Company Number: PHEH2005US07440

PATIENT
  Sex: Female

DRUGS (6)
  1. ZELNORM [Suspect]
     Indication: IRRITABLE BOWEL SYNDROME
     Dosage: 6 MG, BID
     Route: 048
     Dates: start: 20050610, end: 20050616
  2. ZELNORM [Suspect]
     Dosage: 6 MG, BID
     Route: 048
     Dates: start: 20050619
  3. TOPAMAX [Concomitant]
  4. NEURONTIN [Concomitant]
  5. TEGRETOL [Concomitant]
  6. LEVOTHYROXINE [Concomitant]

REACTIONS (1)
  - CONVULSION [None]
